FAERS Safety Report 18483657 (Version 1)
Quarter: 2020Q4

REPORT INFORMATION
  Report Type: Report from Study
  Country: US (occurrence: US)
  Receive Date: 20201109
  Receipt Date: 20201109
  Transmission Date: 20210114
  Serious: No
  Sender: FDA-Public Use
  Company Number: US-INCYTE CORPORATION-2020IN009591

PATIENT

DRUGS (1)
  1. JAKAFI [Suspect]
     Active Substance: RUXOLITINIB
     Indication: POLYCYTHAEMIA VERA
     Dosage: 10 MILLIGRAM, BID
     Route: 065

REACTIONS (6)
  - Haematocrit increased [Unknown]
  - Haemoglobin increased [Unknown]
  - Haematotoxicity [Unknown]
  - Pruritus [Unknown]
  - Platelet count increased [Unknown]
  - Splenomegaly [Unknown]
